FAERS Safety Report 6608246-9 (Version None)
Quarter: 2010Q1

REPORT INFORMATION
  Report Type: 
  Country: None (occurrence: None)
  Receive Date: 20100301
  Receipt Date: 20100219
  Transmission Date: 20100710
  Serious: Yes (Hospitalization)
  Sender: FDA-Public Use
  Company Number: CL-ROCHE-686302

PATIENT
  Sex: Female
  Weight: 58 kg

DRUGS (9)
  1. CAPECITABINE [Suspect]
     Indication: BREAST CANCER
     Route: 048
     Dates: start: 20091005, end: 20100215
  2. AMILORIDE/FUROSEMIDE [Concomitant]
     Dosage: DOSE  REPORTED AS FUROSEMIDE 40MG, AMILORIDE 5MG (1TABLET) DRUG NAME: HIDRIUM TABLET
     Route: 048
  3. VIAGRA [Concomitant]
     Route: 048
  4. FAMOTIDINE [Concomitant]
     Route: 048
  5. CITALOPRAM [Concomitant]
     Dosage: DRUG NAME REPORTED AS ECITALOPRAM
     Route: 048
  6. LOSARTAN POTASSIUM [Concomitant]
     Indication: HYPERTENSION
     Route: 048
  7. ACENOCOUMAROL [Concomitant]
     Indication: THROMBOSIS PROPHYLAXIS
     Dosage: DRUG NAME REPPORTED AS NEO-SINTROM 4MG
     Route: 048
  8. DOMPERIDONE [Concomitant]
     Dosage: DRUG REPORTED AS DOMPERIDONE (IDON)
     Route: 048
  9. O2 [Concomitant]
     Dosage: REPORTED AS OXYGEN THERAPY AT NIGHT

REACTIONS (8)
  - CHEST PAIN [None]
  - DECREASED APPETITE [None]
  - DEPRESSED MOOD [None]
  - LIVER INJURY [None]
  - MALAISE [None]
  - NAUSEA [None]
  - PALMAR-PLANTAR ERYTHRODYSAESTHESIA SYNDROME [None]
  - VOMITING [None]
